FAERS Safety Report 9785203 (Version 3)
Quarter: 2014Q3

REPORT INFORMATION
  Report Type: Spontaneous
  Country: US (occurrence: None)
  Receive Date: 20131224
  Receipt Date: 20140917
  Transmission Date: 20150326
  Serious: No
  Sender: FDA-Public Use
  Company Number: 2019593

PATIENT
  Age: 45 Year
  Sex: Female
  Weight: 75.3 kg

DRUGS (2)
  1. ALEVE [Concomitant]
     Active Substance: NAPROXEN SODIUM
  2. LIDOCAINE HCL [Suspect]
     Active Substance: LIDOCAINE HYDROCHLORIDE
     Indication: BURSITIS
     Route: 014
     Dates: start: 20130801

REACTIONS (5)
  - Muscle tightness [None]
  - Injection site pain [None]
  - Poor quality drug administered [None]
  - Injection site coldness [None]
  - Product contamination physical [None]

NARRATIVE: CASE EVENT DATE: 20130801
